FAERS Safety Report 9619785 (Version 2)
Quarter: 2013Q4

REPORT INFORMATION
  Report Type: Report from Study
  Country: JP (occurrence: JP)
  Receive Date: 20131014
  Receipt Date: 20131014
  Transmission Date: 20140711
  Serious: Yes (Hospitalization)
  Sender: FDA-Public Use
  Company Number: JP-TAKEDA-TCI2013A00833

PATIENT
  Age: 73 Year
  Sex: Female
  Weight: 50 kg

DRUGS (22)
  1. LANSOPRAZOLE [Suspect]
     Dosage: UNK, QD
     Route: 048
     Dates: start: 20120214, end: 20120730
  2. LANSOPRAZOLE [Suspect]
     Dosage: UNK
     Route: 048
     Dates: start: 20120731
  3. UCHIDA HACHIMIJIO-GAN [Concomitant]
     Indication: SPINAL OSTEOARTHRITIS
     Route: 048
  4. UCHIDA HACHIMIJIO-GAN [Concomitant]
     Indication: FEELING COLD
     Route: 048
  5. UCHIDA HACHIMIJIO-GAN [Concomitant]
     Indication: SPINAL OSTEOARTHRITIS
  6. LOXOPROFEN [Concomitant]
     Indication: PERIARTHRITIS
     Route: 048
     Dates: start: 20121228
  7. LOXOPROFEN [Concomitant]
     Indication: SPINAL OSTEOARTHRITIS
  8. LOXOPROFEN [Concomitant]
     Indication: PERIARTHRITIS
  9. NEUROTROPIN [Concomitant]
     Indication: SPINAL OSTEOARTHRITIS
     Route: 048
  10. NEUROTROPIN [Concomitant]
     Indication: SPINAL OSTEOARTHRITIS
     Route: 048
  11. METHYCOBAL [Concomitant]
     Indication: SPINAL OSTEOARTHRITIS
     Route: 048
  12. METHYCOBAL [Concomitant]
     Indication: SPINAL OSTEOARTHRITIS
     Route: 048
  13. NEO VITACAIN [Concomitant]
     Indication: SPINAL OSTEOARTHRITIS
     Route: 061
  14. NEO VITACAIN [Concomitant]
     Indication: SPINAL OSTEOARTHRITIS
     Route: 061
  15. DECADRON [Concomitant]
     Indication: SPINAL OSTEOARTHRITIS
     Route: 008
  16. DECADRON [Concomitant]
     Indication: SPINAL OSTEOARTHRITIS
     Route: 008
  17. XYLOCAINE [Concomitant]
     Indication: SPINAL OSTEOARTHRITIS
     Route: 008
  18. XYLOCAINE [Concomitant]
     Indication: SPINAL OSTEOARTHRITIS
     Route: 008
  19. LOXONIN TAPE [Concomitant]
     Indication: PERIARTHRITIS
     Route: 062
     Dates: start: 20120817
  20. LOXONIN TAPE [Concomitant]
     Indication: PERIARTHRITIS
  21. LOXONIN TAPE [Concomitant]
     Indication: PERIARTHRITIS
  22. LOXONIN TAPE [Concomitant]
     Indication: PERIARTHRITIS

REACTIONS (2)
  - Spinal osteoarthritis [Recovered/Resolved]
  - Condition aggravated [Recovered/Resolved]
